FAERS Safety Report 15857959 (Version 4)
Quarter: 2019Q2

REPORT INFORMATION
  Report Type: Spontaneous
  Country: US (occurrence: US)
  Receive Date: 20190123
  Receipt Date: 20190503
  Transmission Date: 20190711
  Serious: Yes (Other)
  Sender: FDA-Public Use
  Company Number: US-BTG-201900015

PATIENT
  Age: 65 Year
  Sex: Female
  Weight: 87.18 kg

DRUGS (11)
  1. VARITHENA [Suspect]
     Active Substance: POLIDOCANOL
     Indication: PERIPHERAL VENOUS DISEASE
     Dosage: 9CC
     Route: 065
     Dates: start: 20181220
  2. VITAMIN D3 [Concomitant]
     Active Substance: CHOLECALCIFEROL
     Indication: PRODUCT USED FOR UNKNOWN INDICATION
     Dosage: VITAMIN D3 1000 UNIT ORAL CAPSULE (CHOLECALCIFEROL)
     Route: 048
  3. FISH OIL [Concomitant]
     Active Substance: FISH OIL
     Indication: PRODUCT USED FOR UNKNOWN INDICATION
     Dosage: FISH OIL 1000 MG ORAL CAPSULE (OMEGA-3 FATTY ACIDS)
     Route: 048
  4. MULTI-VITAMIN [Concomitant]
     Active Substance: .ALPHA.-TOCOPHEROL ACETATE, DL-\ASCORBIC ACID\CYANOCOBALAMIN\FLUORIDE ION\FOLIC ACID\NIACIN\PYRIDOXINE\RIBOFLAVIN\THIAMINE\VITAMIN A\VITAMIN D
     Indication: PRODUCT USED FOR UNKNOWN INDICATION
     Dosage: MULTI-VITAMIN ORAL TABLET.
     Route: 048
  5. VARITHENA [Suspect]
     Active Substance: POLIDOCANOL
     Indication: PERIPHERAL VENOUS DISEASE
     Dosage: {15 CC FOAM
     Route: 065
     Dates: start: 20181221, end: 20181221
  6. SOTRADECOL [Interacting]
     Active Substance: SODIUM TETRADECYL SULFATE
     Indication: SCLEROTHERAPY
     Dosage: 1:3 SOLUTION/AIR
     Route: 065
     Dates: start: 20181106
  7. SOTRADECOL [Interacting]
     Active Substance: SODIUM TETRADECYL SULFATE
     Indication: SCLEROTHERAPY
     Dosage: 1:3 SOLUTION/AIR
     Route: 065
     Dates: start: 20181220
  8. SOTRADECOL [Interacting]
     Active Substance: SODIUM TETRADECYL SULFATE
     Indication: SCLEROTHERAPY
     Route: 065
     Dates: start: 20181221, end: 20181221
  9. SOTRADECOL [Interacting]
     Active Substance: SODIUM TETRADECYL SULFATE
     Indication: SCLEROTHERAPY
     Dosage: 1:3 SOLUTION/AIR
     Route: 065
     Dates: start: 20181113
  10. TUMERIC [Concomitant]
     Active Substance: HERBALS\TURMERIC
     Indication: PRODUCT USED FOR UNKNOWN INDICATION
     Route: 048
  11. VARITHENA [Suspect]
     Active Substance: POLIDOCANOL
     Indication: PERIPHERAL VENOUS DISEASE
     Dosage: 9CC
     Route: 065
     Dates: start: 20181106

REACTIONS (8)
  - Nausea [Unknown]
  - Air embolism [Unknown]
  - Syncope [Unknown]
  - Generalised tonic-clonic seizure [Recovered/Resolved]
  - Vomiting [Unknown]
  - Road traffic accident [Unknown]
  - Loss of consciousness [Unknown]
  - Dizziness [Unknown]

NARRATIVE: CASE EVENT DATE: 20181107
